FAERS Safety Report 5469183-9 (Version None)
Quarter: 2007Q3

REPORT INFORMATION
  Report Type: 
  Country: None (occurrence: None)
  Receive Date: 20070927
  Receipt Date: 20070924
  Transmission Date: 20080115
  Serious: Yes (Hospitalization)
  Sender: FDA-Public Use
  Company Number: AT-JNJFOC-20050702391

PATIENT
  Sex: Male
  Weight: 72 kg

DRUGS (18)
  1. TMC114 [Suspect]
     Route: 048
  2. TMC114 [Suspect]
     Indication: HIV INFECTION
     Route: 048
  3. RITONAVIR [Suspect]
     Route: 065
  4. RITONAVIR [Suspect]
     Indication: HIV INFECTION
     Route: 065
  5. ENFUVIRTIDE [Concomitant]
     Indication: HIV INFECTION
     Route: 058
  6. LAMIVUDINE [Concomitant]
     Route: 048
  7. LAMIVUDINE [Concomitant]
     Indication: HIV INFECTION
     Route: 048
  8. NEURONTIN [Concomitant]
     Indication: EPILEPSY
     Dosage: STARTED PRE-TRIAL
     Route: 048
  9. IXEL [Concomitant]
     Indication: DEPRESSION
     Dosage: STARTED PRE-TRIAL
     Route: 048
  10. AMPHOMORONAL [Concomitant]
     Indication: ANTIFUNGAL PROPHYLAXIS
     Dosage: STARTED PRE-TRIAL
     Route: 048
  11. FRISIUM [Concomitant]
     Indication: EPILEPSY
     Dosage: STARTED PRE-TRIAL
     Route: 048
  12. PANTOPRAZOLE SODIUM [Concomitant]
     Indication: PROPHYLAXIS AGAINST GASTROINTESTINAL ULCER
     Dosage: STARTED PRE-TRIAL
     Route: 048
  13. IMODIUM [Concomitant]
     Indication: DIARRHOEA
     Dosage: STARTED PRE-TRIAL
     Route: 048
  14. AMITRIPTYLINE HYDROCHLORIDE [Concomitant]
     Indication: DEPRESSION
     Route: 048
  15. MOGADON [Concomitant]
     Indication: INSOMNIA
     Route: 048
  16. ZOLDEM [Concomitant]
     Indication: INSOMNIA
     Route: 048
  17. PRONERV [Concomitant]
     Indication: PROPHYLAXIS
     Route: 048
  18. SEROQUEL [Concomitant]
     Indication: DEPRESSION
     Route: 048

REACTIONS (2)
  - CONFUSIONAL STATE [None]
  - DISORIENTATION [None]
